FAERS Safety Report 6689373-7 (Version None)
Quarter: 2010Q2

REPORT INFORMATION
  Report Type: 
  Country: None (occurrence: None)
  Receive Date: 20100419
  Receipt Date: 20100419
  Transmission Date: 20101027
  Serious: No
  Sender: FDA-Public Use
  Company Number: None

PATIENT
  Age: 75 Year
  Sex: Male
  Weight: 72.5755 kg

DRUGS (5)
  1. SIMVASTATIN [Suspect]
     Indication: BLOOD CHOLESTEROL INCREASED
     Dosage: 1 80 MG PILL DAILY BUCCAL
     Route: 002
     Dates: start: 20000101, end: 20100308
  2. METOPROPOL [Concomitant]
  3. AMLODIPINE [Concomitant]
  4. LISINAPRIL [Concomitant]
  5. TAMLOUSAN [Concomitant]

REACTIONS (4)
  - INSOMNIA [None]
  - MUSCULOSKELETAL PAIN [None]
  - PAIN IN EXTREMITY [None]
  - TENDON DISORDER [None]
